FAERS Safety Report 7817578-8 (Version None)
Quarter: 2011Q4

REPORT INFORMATION
  Report Type: 
  Country: None (occurrence: None)
  Receive Date: 20111017
  Receipt Date: 20111005
  Transmission Date: 20120403
  Serious: Yes (Other)
  Sender: FDA-Public Use
  Company Number: PHFR2011GB05542

PATIENT
  Age: 37 Year
  Sex: Male

DRUGS (1)
  1. TEGRETOL [Suspect]
     Dosage: 400 MG, BID
     Route: 065

REACTIONS (2)
  - EPILEPSY [None]
  - SUICIDAL IDEATION [None]
